FAERS Safety Report 8356170-6 (Version None)
Quarter: 2012Q1

REPORT INFORMATION
  Report Type: 
  Country: None (occurrence: None)
  Receive Date: 20120315
  Receipt Date: 20110504
  Transmission Date: 20120608
  Serious: Yes (Other)
  Sender: FDA-Public Use
  Company Number: PHHY2011US26531

PATIENT
  Age: 53 Year
  Sex: Female

DRUGS (6)
  1. PREMPRO [Concomitant]
  2. ACTONEL (RESEDRONATE SODIUM) [Concomitant]
  3. CEPHALEXIN [Concomitant]
  4. GILENYA [Suspect]
     Indication: RELAPSING-REMITTING MULTIPLE SCLEROSIS
     Dosage: 0.5 MG, QD, ORAL
     Route: 048
     Dates: start: 20101109, end: 20110330
  5. CYCLOBENZAPRINE [Concomitant]
  6. VITAMIN D [Concomitant]

REACTIONS (6)
  - HERPES SIMPLEX [None]
  - LYMPHOCYTE COUNT DECREASED [None]
  - BRONCHITIS [None]
  - VULVAL DISORDER [None]
  - WHITE BLOOD CELL COUNT DECREASED [None]
  - ORAL DISORDER [None]
